FAERS Safety Report 8410474 (Version 3)
Quarter: 2013Q1

REPORT INFORMATION
  Report Type: Spontaneous
  Country: US (occurrence: US)
  Receive Date: 20120217
  Receipt Date: 20130220
  Transmission Date: 20140127
  Serious: Yes (Hospitalization)
  Sender: FDA-Public Use
  Company Number: US-BAYER-2012-015543

PATIENT
  Age: 17 Year
  Sex: Female
  Weight: 54 kg

DRUGS (12)
  1. GIANVI [Suspect]
     Dosage: UNK
     Dates: start: 20110426, end: 20110720
  2. YAZ [Suspect]
  3. ALLEGRA [Concomitant]
     Indication: MULTIPLE ALLERGIES
     Dosage: 180 MG, UNK
     Route: 048
     Dates: start: 2006
  4. SINGULAIR [Concomitant]
     Indication: MULTIPLE ALLERGIES
     Dosage: 10 MG, UNK
     Route: 048
     Dates: start: 2006
  5. VENTOLIN [Concomitant]
     Dosage: UNK
     Dates: start: 2006
  6. TYLENOL [Concomitant]
     Indication: PAIN
     Dosage: 500 MG, UNK
     Dates: start: 201107
  7. ZOLPIDEM [Concomitant]
     Dosage: 5 MG, UNK
     Dates: start: 20110514
  8. NAPROXEN [Concomitant]
     Dosage: 375 MG, UNK
     Dates: start: 20110526
  9. PREDNISONE [Concomitant]
     Dosage: 5 MG, UNK
     Dates: start: 20110527
  10. FLUCONAZOLE [Concomitant]
     Dosage: 150 MG, UNK
     Dates: start: 20110718
  11. AZITHROMYCIN [Concomitant]
  12. AMBIEN [Concomitant]

REACTIONS (1)
  - Pulmonary embolism [Recovered/Resolved]
